FAERS Safety Report 25193411 (Version 2)
Quarter: 2025Q2

REPORT INFORMATION
  Report Type: Spontaneous
  Country: US (occurrence: US)
  Receive Date: 20250414
  Receipt Date: 20250414
  Transmission Date: 20250717
  Serious: No
  Sender: ALEXION PHARMACEUTICALS
  Company Number: US-ASTRAZENECA-202504USA009442US

PATIENT

DRUGS (1)
  1. TEZSPIRE [Suspect]
     Active Substance: TEZEPELUMAB-EKKO
     Route: 065

REACTIONS (6)
  - Reflux gastritis [Unknown]
  - Respiratory tract irritation [Unknown]
  - Asthma [Unknown]
  - Hypersensitivity [Unknown]
  - Mastocytosis [Unknown]
  - Therapeutic product effect incomplete [Unknown]
